FAERS Safety Report 21439287 (Version 1)
Quarter: 2022Q4

REPORT INFORMATION
  Report Type: Spontaneous
  Country: US (occurrence: None)
  Receive Date: 20221008
  Receipt Date: 20221008
  Transmission Date: 20230112
  Serious: Yes (Hospitalization)
  Sender: FDA-Public Use
  Company Number: None

PATIENT
  Age: 54 Year
  Sex: Female

DRUGS (1)
  1. POMALYST [Suspect]
     Active Substance: POMALIDOMIDE
     Indication: Plasma cell myeloma
     Dosage: FREQUENCY : DAILY;?
     Route: 048
     Dates: start: 20190924

REACTIONS (8)
  - Tension headache [None]
  - Mental status changes [None]
  - Pain [None]
  - Basal ganglia infarction [None]
  - Cerebral infarction [None]
  - Cerebral artery stenosis [None]
  - Ischaemic cerebral infarction [None]
  - Cerebral mass effect [None]

NARRATIVE: CASE EVENT DATE: 20220821
